FAERS Safety Report 9293473 (Version 1)
Quarter: 2013Q2

REPORT INFORMATION
  Report Type: Spontaneous
  Country: US (occurrence: US)
  Receive Date: 20130516
  Receipt Date: 20130516
  Transmission Date: 20140414
  Serious: No
  Sender: FDA-Public Use
  Company Number: US-B.I. PHARMACEUTICALS,INC./RIDGEFIELD-2013-BI-13503BP

PATIENT
  Sex: Female
  Weight: 92.9 kg

DRUGS (2)
  1. COMBIVENT [Suspect]
     Indication: CHRONIC OBSTRUCTIVE PULMONARY DISEASE
     Dosage: STRENGTH: 20 MCG / 100 MCG; DAILY DOSE 1 TO 2 PUFFS NO MORE THAN 4 TIMES A DAY
     Route: 055
     Dates: start: 201302
  2. COMBIVENT [Suspect]
     Indication: CHRONIC OBSTRUCTIVE PULMONARY DISEASE
     Dosage: STRENGTH: 18 MCG / 103 MCG; NO MORE THAN 2 PUFFS 6 TIMES A DAY
     Route: 055
     Dates: start: 2003, end: 201302

REACTIONS (2)
  - Increased upper airway secretion [Not Recovered/Not Resolved]
  - Dyspnoea [Not Recovered/Not Resolved]
